FAERS Safety Report 6826398-2 (Version None)
Quarter: 2010Q3

REPORT INFORMATION
  Report Type: 
  Country: None (occurrence: None)
  Receive Date: 20100709
  Receipt Date: 20100629
  Transmission Date: 20110219
  Serious: Yes (Hospitalization)
  Sender: FDA-Public Use
  Company Number: JP-SANOFI-AVENTIS-2010SA010386

PATIENT
  Age: 65 Year
  Sex: Female
  Weight: 54 kg

DRUGS (13)
  1. OXALIPLATIN [Suspect]
     Indication: COLON CANCER
     Route: 041
     Dates: start: 20100208, end: 20100208
  2. OXALIPLATIN [Suspect]
     Route: 041
     Dates: start: 20090309, end: 20090309
  3. CALCIUM LEVOFOLINATE [Suspect]
     Indication: COLON CANCER
     Route: 041
     Dates: start: 20100208, end: 20100209
  4. CALCIUM LEVOFOLINATE [Suspect]
     Route: 041
     Dates: start: 20090309, end: 20090309
  5. FLUOROURACIL [Concomitant]
     Indication: COLON CANCER
     Route: 040
     Dates: start: 20100208, end: 20100208
  6. FLUOROURACIL [Concomitant]
     Route: 041
     Dates: start: 20100208, end: 20100209
  7. FLUOROURACIL [Concomitant]
     Route: 040
     Dates: start: 20090309, end: 20090309
  8. FLUOROURACIL [Concomitant]
     Route: 041
     Dates: start: 20090309, end: 20090310
  9. AVASTIN [Concomitant]
     Indication: COLON CANCER
     Route: 041
     Dates: start: 20100208, end: 20100208
  10. AVASTIN [Concomitant]
     Route: 041
     Dates: start: 20100118, end: 20100118
  11. GRANISETRON HCL [Concomitant]
     Indication: PREMEDICATION
     Route: 041
     Dates: start: 20090309, end: 20100208
  12. DEXAMETHASONE SODIUM PHOSPHATE [Concomitant]
     Indication: PREMEDICATION
     Route: 041
     Dates: start: 20090309, end: 20100208
  13. SOLULACT [Concomitant]
     Route: 041
     Dates: start: 20100208, end: 20100208

REACTIONS (1)
  - ANAPHYLACTOID REACTION [None]
